FAERS Safety Report 10052156 (Version 1)
Quarter: 2014Q2

REPORT INFORMATION
  Report Type: Spontaneous
  Country: TW (occurrence: TW)
  Receive Date: 20140402
  Receipt Date: 20140402
  Transmission Date: 20141212
  Serious: Yes (Other)
  Sender: FDA-Public Use
  Company Number: TW-ROCHE-1371440

PATIENT
  Age: 61 Year
  Sex: Female

DRUGS (8)
  1. HERCEPTIN [Suspect]
     Indication: BREAST CANCER METASTATIC
     Route: 065
     Dates: start: 201101
  2. HERCEPTIN [Suspect]
     Route: 065
     Dates: start: 201109
  3. HERCEPTIN [Suspect]
     Route: 065
     Dates: start: 201201
  4. XELODA [Suspect]
     Indication: BREAST CANCER METASTATIC
     Route: 065
     Dates: start: 201207
  5. PACLITAXEL [Concomitant]
     Indication: BREAST CANCER METASTATIC
     Route: 065
     Dates: start: 201101
  6. VINORELBINE [Concomitant]
     Indication: BREAST CANCER METASTATIC
     Route: 065
     Dates: start: 201109
  7. AROMASIN [Concomitant]
     Indication: BREAST CANCER METASTATIC
     Route: 065
  8. LAPATINIB [Concomitant]
     Indication: BREAST CANCER METASTATIC
     Route: 065
     Dates: start: 201207

REACTIONS (2)
  - Metastases to liver [Unknown]
  - Disease progression [Unknown]
